FAERS Safety Report 4569325-3 (Version None)
Quarter: 2005Q1

REPORT INFORMATION
  Report Type: 
  Country: None (occurrence: None)
  Receive Date: 20050118
  Receipt Date: 20040713
  Transmission Date: 20050727
  Serious: Yes (Hospitalization, Other)
  Sender: FDA-Public Use
  Company Number: HQ1013110FEB2000

PATIENT
  Age: 39 Year
  Sex: Female
  Weight: 71.73 kg

DRUGS (1)
  1. PREMPRO [Suspect]
     Indication: HORMONE REPLACEMENT THERAPY
     Dosage: 0.625 MG/2.5 MG DAILY, ORAL
     Route: 048
     Dates: start: 19961108, end: 20000105

REACTIONS (3)
  - ABNORMAL BEHAVIOUR [None]
  - BREAST CANCER FEMALE [None]
  - MIGRAINE [None]
